FAERS Safety Report 4657585-X (Version None)
Quarter: 2005Q2

REPORT INFORMATION
  Report Type: 
  Country: None (occurrence: None)
  Receive Date: 20050509
  Receipt Date: 20050509
  Transmission Date: 20051028
  Serious: Yes (Hospitalization)
  Sender: FDA-Public Use
  Company Number: None

PATIENT
  Sex: Female
  Weight: 50.7 kg

DRUGS (2)
  1. GEMCITABINE  700MG/M2 [Suspect]
     Indication: PANCREATIC CARCINOMA
     Dosage: 1100MG  QWEEKX3  INTRAVENOUS
     Route: 042
     Dates: start: 20050418, end: 20050502
  2. PTK 787/ZK 222584  1250MG  NOVARTIS [Suspect]
     Dosage: 1250MG  QDAY  ORAL
     Route: 048

REACTIONS (1)
  - LOBAR PNEUMONIA [None]
